FAERS Safety Report 15245774 (Version 4)
Quarter: 2018Q3

REPORT INFORMATION
  Report Type: Report from Study
  Country: DE (occurrence: DE)
  Receive Date: 20180806
  Receipt Date: 20180816
  Transmission Date: 20181010
  Serious: Yes (Hospitalization)
  Sender: FDA-Public Use
  Company Number: DE-TEVA-2018-DE-935558

PATIENT
  Age: 56 Year
  Sex: Female
  Weight: 61 kg

DRUGS (20)
  1. CARBOPLATIN. [Suspect]
     Active Substance: CARBOPLATIN
     Indication: NON-SMALL CELL LUNG CANCER
     Dosage: 6 MG MIN/ML
     Route: 041
     Dates: start: 20171101
  2. ONDANSETRON [Concomitant]
     Active Substance: ONDANSETRON
     Indication: PROPHYLAXIS
     Route: 041
     Dates: start: 20170101
  3. CIPROFLOXACIN. [Concomitant]
     Active Substance: CIPROFLOXACIN
     Indication: PNEUMONIA
     Route: 048
     Dates: start: 20171024, end: 20171102
  4. EUBIOL [Concomitant]
     Indication: DIARRHOEA
     Route: 048
     Dates: start: 20171115, end: 20171208
  5. SODIUM CHLORIDE. [Concomitant]
     Active Substance: SODIUM CHLORIDE
     Indication: PROPHYLAXIS
     Route: 041
     Dates: start: 20171101
  6. PIPERACILLIN/TAZOBACTAM [Concomitant]
     Active Substance: PIPERACILLIN SODIUM\TAZOBACTAM SODIUM
     Indication: PNEUMONIA
     Route: 048
     Dates: start: 20171026, end: 20171102
  7. SELEN [Concomitant]
     Active Substance: SELENIUM
     Indication: SELENIUM DEFICIENCY
     Dosage: 500 MICROGRAM DAILY; 500 MICROGRAM
     Route: 048
     Dates: start: 20171023
  8. ABRAXANE [Suspect]
     Active Substance: PACLITAXEL
     Dosage: 100 MG/M2 DAILY; 100 MILLIGRAM/SQ. METER
     Route: 041
     Dates: start: 20180104
  9. AMOCLAV 875/125 [Concomitant]
     Indication: PNEUMONIA
     Dosage: 2 UNKNOWN
     Route: 048
     Dates: start: 20171102, end: 20171105
  10. MCP [Concomitant]
     Active Substance: METOCLOPRAMIDE HYDROCHLORIDE
     Indication: PNEUMONIA
     Route: 048
     Dates: start: 20171026, end: 20171027
  11. DEKRISTOL 2000IE [Concomitant]
     Indication: VITAMIN D DEFICIENCY
     Dosage: 2000 IU (INTERNATIONAL UNIT) DAILY; 2000 IU (INTERNATIONAL UNIT)
     Route: 048
     Dates: start: 20171023
  12. DEXAMETHASONE. [Concomitant]
     Active Substance: DEXAMETHASONE
     Indication: PROPHYLAXIS
     Route: 041
     Dates: start: 20171101
  13. ABRAXANE [Suspect]
     Active Substance: PACLITAXEL
     Dosage: 100 MG/M2 DAILY; 100 MILLIGRAM/SQ. METER
     Route: 041
     Dates: start: 20180111
  14. TRIMIPRAMIN 100 [Concomitant]
     Indication: DEPRESSION
     Dosage: 150 MILLIGRAM DAILY; 150 MILLIGRAM
     Route: 048
  15. ABRAXANE [Suspect]
     Active Substance: PACLITAXEL
     Indication: NON-SMALL CELL LUNG CANCER
     Dosage: 100 MG/M2 DAILY; 100 MILLIGRAM/SQ. METER
     Route: 041
     Dates: start: 20171101
  16. NOVAMIN [Concomitant]
     Indication: PNEUMONIA
     Route: 048
     Dates: start: 20171024, end: 20171027
  17. BISOPROLOL 2,5 [Concomitant]
     Indication: SUPRAVENTRICULAR TACHYCARDIA
     Dosage: 2.5 MILLIGRAM DAILY; 2.5 MILLIGRAM
     Route: 048
  18. METRONIDAZOL [Concomitant]
     Active Substance: METRONIDAZOLE
     Indication: DIARRHOEA
     Dosage: 1200 MILLIGRAM DAILY; 1200 MILLIGRAM
     Route: 048
     Dates: start: 20171117, end: 20171127
  19. VITAMIN E [Concomitant]
     Active Substance: .ALPHA.-TOCOPHEROL
     Indication: PROPHYLAXIS
     Dosage: 300 MILLIGRAM DAILY; 300 MILLIGRAM
     Route: 048
     Dates: start: 20171201
  20. SEEBRI [Concomitant]
     Active Substance: GLYCOPYRRONIUM
     Indication: CHRONIC OBSTRUCTIVE PULMONARY DISEASE
     Dosage: 1 UNKNOWN
     Route: 055
     Dates: start: 20171011

REACTIONS (6)
  - Peripheral sensory neuropathy [Unknown]
  - Anaemia [Recovered/Resolved]
  - Acute kidney injury [Not Recovered/Not Resolved]
  - Pneumonia [Recovered/Resolved]
  - Leukopenia [Not Recovered/Not Resolved]
  - Hypokalaemia [Recovered/Resolved]

NARRATIVE: CASE EVENT DATE: 20180111
